FAERS Safety Report 6658388-7 (Version None)
Quarter: 2010Q1

REPORT INFORMATION
  Report Type: 
  Country: None (occurrence: None)
  Receive Date: 20100330
  Receipt Date: 20100302
  Transmission Date: 20100710
  Serious: No
  Sender: FDA-Public Use
  Company Number: US-BIOGENIDEC-2010BI007219

PATIENT
  Age: 24 Year
  Sex: Female

DRUGS (3)
  1. TYSABRI [Suspect]
     Indication: MULTIPLE SCLEROSIS
     Route: 042
     Dates: start: 20040101, end: 20050101
  2. TYSABRI [Suspect]
     Route: 042
     Dates: start: 20070426
  3. AVONEX [Concomitant]
     Indication: MULTIPLE SCLEROSIS
     Route: 030
     Dates: start: 20021003

REACTIONS (3)
  - OROPHARYNGEAL PAIN [None]
  - RHINORRHOEA [None]
  - TONSILLAR INFLAMMATION [None]
